FAERS Safety Report 16292813 (Version 1)
Quarter: 2019Q2

REPORT INFORMATION
  Report Type: Report from Study
  Country: CZ (occurrence: CZ)
  Receive Date: 20190509
  Receipt Date: 20190509
  Transmission Date: 20190711
  Serious: Yes (Other)
  Sender: FDA-Public Use
  Company Number: CZ-TEVA-2019-CZ-1048049

PATIENT
  Age: 61 Year
  Sex: Female

DRUGS (3)
  1. AFLIBERCEPT [Suspect]
     Active Substance: AFLIBERCEPT
     Route: 065
     Dates: end: 20160111
  2. FOLINIC ACID [Suspect]
     Active Substance: LEUCOVORIN
     Indication: ADENOCARCINOMA
     Dosage: 12 CYCLES IN FOLFIRI REGIMEN
     Route: 042
     Dates: start: 20140908
  3. IRINOTECAN [Suspect]
     Active Substance: IRINOTECAN
     Indication: ADENOCARCINOMA
     Dosage: IN FOLFOX REGIMEN
     Route: 042
     Dates: start: 20140623, end: 2014

REACTIONS (4)
  - Thrombocytopenia [Recovered/Resolved]
  - Diarrhoea [Recovered/Resolved]
  - Fatigue [Recovered/Resolved]
  - Adenocarcinoma [Unknown]

NARRATIVE: CASE EVENT DATE: 2014
